FAERS Safety Report 5123323-X (Version None)
Quarter: 2006Q4

REPORT INFORMATION
  Report Type: 
  Country: None (occurrence: None)
  Receive Date: 20061009
  Receipt Date: 20060315
  Transmission Date: 20070319
  Serious: Yes (Other)
  Sender: FDA-Public Use
  Company Number: US-BRISTOL-MYERS SQUIBB COMPANY-13378112

PATIENT
  Age: 71 Year
  Sex: Female

DRUGS (11)
  1. PRAVACHOL [Suspect]
     Indication: HYPERLIPIDAEMIA
     Route: 048
     Dates: start: 20051222, end: 20051201
  2. ASPIRIN [Concomitant]
  3. LEVOTHYROXINE SODIUM [Concomitant]
  4. PLENDIL [Concomitant]
  5. INSULIN [Concomitant]
  6. CLONIDINE [Concomitant]
  7. METOPROLOL TARTRATE [Concomitant]
  8. PLAVIX [Concomitant]
  9. IMDUR [Concomitant]
  10. HYDROCHLOROTHIAZIDE [Concomitant]
  11. DIOVAN [Concomitant]

REACTIONS (3)
  - EATING DISORDER [None]
  - JOINT STIFFNESS [None]
  - LOSS OF CONSCIOUSNESS [None]
